FAERS Safety Report 6504127-X (Version None)
Quarter: 2009Q4

REPORT INFORMATION
  Report Type: 
  Country: None (occurrence: None)
  Receive Date: 20091215
  Receipt Date: 20091208
  Transmission Date: 20100525
  Serious: Yes (Disabling)
  Sender: FDA-Public Use
  Company Number: 2009SP037883

PATIENT
  Age: 19 Year
  Sex: Female
  Weight: 58 kg

DRUGS (5)
  1. PEGINTERFERON ALFA-2B (S-P) (PEGINTERFERON ALFA-2B) [Suspect]
     Indication: BONE SARCOMA
     Dosage: 0.5 MCG/KG;QW;SC  : 1.0 MCG/KG;QW;SC
     Route: 058
     Dates: end: 20091111
  2. PEGINTERFERON ALFA-2B (S-P) (PEGINTERFERON ALFA-2B) [Suspect]
     Indication: BONE SARCOMA
     Dosage: 0.5 MCG/KG;QW;SC  : 1.0 MCG/KG;QW;SC
     Route: 058
     Dates: start: 20090929
  3. DOXORUBICIN HCL [Suspect]
     Indication: BONE SARCOMA
     Dosage: 37.5 MG/M2; IV
     Route: 042
     Dates: start: 20081202, end: 20090811
  4. METHOTREXATE [Suspect]
     Indication: BONE SARCOMA
     Dosage: 12000 MG/M2; IV
     Route: 042
     Dates: start: 20081226, end: 20090907
  5. CISPLATIN [Suspect]
     Indication: BONE SARCOMA
     Dosage: 120 MG/M2; IV
     Route: 042
     Dates: start: 20081202, end: 20090707

REACTIONS (5)
  - ASTHENIA [None]
  - CARDIAC DISORDER [None]
  - DYSPNOEA [None]
  - FATIGUE [None]
  - LEFT VENTRICULAR DYSFUNCTION [None]
